FAERS Safety Report 8559580-7 (Version None)
Quarter: 2012Q3

REPORT INFORMATION
  Report Type: 
  Country: None (occurrence: None)
  Receive Date: 20120727
  Receipt Date: 20120727
  Transmission Date: 20120928
  Serious: Yes (Other)
  Sender: FDA-Public Use
  Company Number: None

PATIENT
  Sex: Female

DRUGS (9)
  1. ESTRADIOL [Concomitant]
  2. PROLIA [Suspect]
     Dosage: 60MG/ML ONCE
  3. RIMARON [Concomitant]
  4. THYDADENE [Concomitant]
  5. PHENTANOL PATCH [Concomitant]
  6. TIGAN [Concomitant]
  7. ASPIRIN [Concomitant]
  8. PREVACID [Concomitant]
  9. LUNESTA [Concomitant]

REACTIONS (2)
  - HALLUCINATION, AUDITORY [None]
  - MEMORY IMPAIRMENT [None]
